FAERS Safety Report 6548138-7 (Version None)
Quarter: 2010Q1

REPORT INFORMATION
  Report Type: 
  Country: None (occurrence: None)
  Receive Date: 20100124
  Receipt Date: 20090108
  Transmission Date: 20100710
  Serious: No
  Sender: FDA-Public Use
  Company Number: US-ALLERGAN-0900208US

PATIENT
  Age: 74 Year
  Sex: Female

DRUGS (7)
  1. RESTASIS [Suspect]
     Indication: DRY EYE
     Dosage: 1 GTT, BID
     Route: 047
     Dates: start: 20090105
  2. NEXIUM [Concomitant]
  3. PROVERA [Concomitant]
  4. PROMEGA [Concomitant]
  5. GLUCOSAMINE [Concomitant]
  6. CHONDROITIN [Concomitant]
  7. VITAMIN D [Concomitant]

REACTIONS (2)
  - EYE IRRITATION [None]
  - EYE PRURITUS [None]
